FAERS Safety Report 25734768 (Version 4)
Quarter: 2025Q4

REPORT INFORMATION
  Report Type: Spontaneous
  Country: JP (occurrence: JP)
  Receive Date: 20250828
  Receipt Date: 20251002
  Transmission Date: 20260117
  Serious: Yes (Death, Hospitalization, Other)
  Sender: NOVARTIS
  Company Number: JP-002147023-NVSJ2025JP008560

PATIENT
  Age: 68 Year
  Sex: Male

DRUGS (4)
  1. TAFINLAR [Suspect]
     Active Substance: DABRAFENIB MESYLATE
     Indication: Lung neoplasm malignant
     Dosage: 75 MG, BID
     Route: 048
     Dates: start: 20250425, end: 20250514
  2. TAFINLAR [Suspect]
     Active Substance: DABRAFENIB MESYLATE
     Indication: BRAF V600E mutation positive
     Dosage: 75 MG, BID
     Route: 048
     Dates: start: 20250516
  3. MEKINIST [Suspect]
     Active Substance: TRAMETINIB DIMETHYL SULFOXIDE
     Indication: Lung neoplasm malignant
     Dosage: 2 MG, QD
     Route: 048
     Dates: start: 20250425, end: 20250514
  4. MEKINIST [Suspect]
     Active Substance: TRAMETINIB DIMETHYL SULFOXIDE
     Indication: BRAF V600E mutation positive
     Dosage: 2 MG, QD
     Route: 048
     Dates: start: 20250516

REACTIONS (9)
  - General physical health deterioration [Fatal]
  - Pyrexia [Fatal]
  - Lung neoplasm malignant [Fatal]
  - Malignant neoplasm progression [Fatal]
  - Prostate cancer [Unknown]
  - Cytokine release syndrome [Unknown]
  - Cardiac dysfunction [Unknown]
  - Pericardial effusion [Unknown]
  - Metastasis [Unknown]

NARRATIVE: CASE EVENT DATE: 20250501
